FAERS Safety Report 13183058 (Version 2)
Quarter: 2017Q1

REPORT INFORMATION
  Report Type: Spontaneous
  Country: US (occurrence: US)
  Receive Date: 20170203
  Receipt Date: 20170209
  Transmission Date: 20170428
  Serious: No
  Sender: FDA-Public Use
  Company Number: US-009507513-1702USA000132

PATIENT
  Age: 24 Year
  Sex: Female
  Weight: 92.97 kg

DRUGS (2)
  1. PEPCID [Concomitant]
     Active Substance: FAMOTIDINE
     Dosage: UNK
  2. NEXPLANON [Suspect]
     Active Substance: ETONOGESTREL
     Indication: CONTRACEPTION
     Dosage: 1 LEFT ARM IMPLANT, EVERY 3 YEARS
     Route: 059
     Dates: start: 20170127

REACTIONS (2)
  - Pruritus [Unknown]
  - Nightmare [Unknown]

NARRATIVE: CASE EVENT DATE: 20170127
